FAERS Safety Report 10445929 (Version 2)
Quarter: 2014Q4

REPORT INFORMATION
  Report Type: Spontaneous
  Country: FR (occurrence: FR)
  Receive Date: 20140910
  Receipt Date: 20141110
  Transmission Date: 20150528
  Serious: Yes (Hospitalization)
  Sender: FDA-Public Use
  Company Number: ALCN2014FR005040

PATIENT
  Age: 84 Year
  Sex: Male

DRUGS (9)
  1. TOBREX [Suspect]
     Active Substance: TOBRAMYCIN
     Indication: ULCERATIVE KERATITIS
     Dosage: 2 GTT, QD
     Route: 047
     Dates: start: 20140807
  2. VIRGAN [Suspect]
     Active Substance: GANCICLOVIR
     Indication: ULCERATIVE KERATITIS
     Dosage: 3 GTT, QD
     Dates: start: 20140807
  3. ZOVIRAX [Suspect]
     Active Substance: ACYCLOVIR
     Dosage: 800 MG, BID
     Route: 048
     Dates: start: 20140807, end: 20140822
  4. PREVISCAN [Concomitant]
     Active Substance: FLUINDIONE
     Dosage: 0.5 DF, QHS
  5. LASILIX [Concomitant]
     Active Substance: FUROSEMIDE
     Dosage: 1 DF, IN THE MORNING
  6. DIFFU-K [Concomitant]
     Active Substance: POTASSIUM CHLORIDE
     Dosage: 2 TABLETS IN THE MORNING, 1 TABLET AT NOON
  7. ZOVIRAX [Suspect]
     Active Substance: ACYCLOVIR
     Dosage: 400 MG, BID
     Route: 048
     Dates: start: 20140822, end: 20140826
  8. ARICEPT [Concomitant]
     Active Substance: DONEPEZIL HYDROCHLORIDE
     Dosage: 1 DF, IN THE MORNING
  9. ZOVIRAX [Suspect]
     Active Substance: ACYCLOVIR
     Indication: OPHTHALMIC HERPES SIMPLEX
     Dosage: 200 MG, TID
     Route: 048
     Dates: start: 20140705

REACTIONS (2)
  - Leukopenia [Recovered/Resolved]
  - Thrombocytopenia [Recovered/Resolved]

NARRATIVE: CASE EVENT DATE: 20140819
